FAERS Safety Report 23033979 (Version 1)
Quarter: 2023Q4

REPORT INFORMATION
  Report Type: Spontaneous
  Country: US (occurrence: None)
  Receive Date: 20231005
  Receipt Date: 20231005
  Transmission Date: 20240110
  Serious: Yes (Disabling)
  Sender: FDA-Public Use
  Company Number: None

PATIENT
  Age: 84 Year
  Sex: Male

DRUGS (2)
  1. PEGCETACOPLAN [Suspect]
     Active Substance: PEGCETACOPLAN
     Indication: Dry age-related macular degeneration
     Dosage: 15 MG Q2 MONTHS INTRAVITREAL?
     Route: 050
     Dates: start: 20230901, end: 20230901
  2. EYLEA [Concomitant]
     Active Substance: AFLIBERCEPT
     Dates: start: 20210915, end: 20230929

REACTIONS (2)
  - Haemorrhagic occlusive retinal vasculitis [None]
  - Blindness [None]

NARRATIVE: CASE EVENT DATE: 20230915
